FAERS Safety Report 8197872-4 (Version None)
Quarter: 2012Q1

REPORT INFORMATION
  Report Type: 
  Country: None (occurrence: None)
  Receive Date: 20120309
  Receipt Date: 20120301
  Transmission Date: 20120608
  Serious: Yes (Hospitalization)
  Sender: FDA-Public Use
  Company Number: DE-BRACCO-001045

PATIENT
  Sex: Male

DRUGS (1)
  1. PROHANCE [Suspect]
     Indication: NUCLEAR MAGNETIC RESONANCE IMAGING
     Dosage: GIVEN AT 08:45H, CONCENTRATION: 0.5 MOL
     Dates: start: 20111209, end: 20111209

REACTIONS (3)
  - CIRCULATORY COLLAPSE [None]
  - CONTUSION [None]
  - FALL [None]
